FAERS Safety Report 6030139-9 (Version None)
Quarter: 2009Q1

REPORT INFORMATION
  Report Type: 
  Country: None (occurrence: None)
  Receive Date: 20090107
  Receipt Date: 20081230
  Transmission Date: 20090719
  Serious: Yes (Hospitalization, Other)
  Sender: FDA-Public Use
  Company Number: US-MERCK-0802USA05960

PATIENT
  Age: 63 Year
  Sex: Female

DRUGS (2)
  1. FOSAMAX [Suspect]
     Indication: OSTEOPOROSIS
     Route: 048
     Dates: start: 19960101
  2. FOSAMAX [Suspect]
     Route: 048
     Dates: start: 19991201, end: 20060101

REACTIONS (49)
  - ADVERSE DRUG REACTION [None]
  - ALCOHOLISM [None]
  - ANAEMIA [None]
  - ANAEMIA POSTOPERATIVE [None]
  - ANXIETY [None]
  - BRONCHITIS [None]
  - CARDIAC FAILURE CONGESTIVE [None]
  - CARDIOMEGALY [None]
  - CELLULITIS [None]
  - CHRONIC OBSTRUCTIVE PULMONARY DISEASE [None]
  - CHRONIC RESPIRATORY FAILURE [None]
  - COR PULMONALE [None]
  - DEPRESSION [None]
  - DRUG HYPERSENSITIVITY [None]
  - DRUG INEFFECTIVE [None]
  - GASTROOESOPHAGEAL REFLUX DISEASE [None]
  - HIP FRACTURE [None]
  - HYPERGLYCAEMIA [None]
  - HYPERSENSITIVITY [None]
  - HYPERURICAEMIA [None]
  - HYPOVENTILATION [None]
  - HYPOXIA [None]
  - INFECTION [None]
  - INFLAMMATION [None]
  - KYPHOSIS [None]
  - MALAISE [None]
  - METABOLIC ALKALOSIS [None]
  - NEPHROSCLEROSIS [None]
  - NODULE [None]
  - OBESITY [None]
  - OEDEMA [None]
  - OSTEOMYELITIS ACUTE [None]
  - OSTEONECROSIS [None]
  - PAIN [None]
  - PNEUMONITIS [None]
  - PROTEINURIA [None]
  - PULMONARY HYPERTENSION [None]
  - PULMONARY INTERSTITIAL EMPHYSEMA SYNDROME [None]
  - RENAL FAILURE [None]
  - RENAL FAILURE CHRONIC [None]
  - RESORPTION BONE INCREASED [None]
  - RESPIRATORY DISORDER [None]
  - RESTRICTIVE PULMONARY DISEASE [None]
  - RIB FRACTURE [None]
  - SLEEP APNOEA SYNDROME [None]
  - SPINAL COMPRESSION FRACTURE [None]
  - SPINAL CORD COMPRESSION [None]
  - TREATMENT NONCOMPLIANCE [None]
  - URINARY TRACT INFECTION [None]
